FAERS Safety Report 8653479 (Version 4)
Quarter: 2013Q4

REPORT INFORMATION
  Report Type: Report from Study
  Country: US (occurrence: US)
  Receive Date: 20120618
  Receipt Date: 20131031
  Transmission Date: 20140711
  Serious: Yes (Other)
  Sender: FDA-Public Use
  Company Number: US-MSD-2012SP031321

PATIENT
  Sex: Female

DRUGS (4)
  1. PEG-INTRON [Suspect]
     Indication: HEPATITIS C
     Dosage: UNK UNK, UNKNOWN
     Route: 065
     Dates: start: 20120504
  2. REBETOL [Suspect]
     Indication: HEPATITIS C
     Dosage: UNK UNK, UNKNOWN
     Route: 065
     Dates: start: 20120504
  3. VICTRELIS [Suspect]
     Indication: HEPATITIS C
     Dosage: UNK UNK, UNKNOWN
     Route: 065
     Dates: start: 20120601
  4. VALTREX [Suspect]
     Indication: HERPES ZOSTER
     Dosage: UNK UNK, UNKNOWN
     Route: 065

REACTIONS (24)
  - Tongue oedema [Unknown]
  - Tongue disorder [Unknown]
  - Dysgeusia [Unknown]
  - Malaise [Unknown]
  - Feeling abnormal [Unknown]
  - Swelling face [Unknown]
  - Scratch [Unknown]
  - Contusion [Unknown]
  - Vascular injury [Unknown]
  - Hypoaesthesia [Unknown]
  - Herpes zoster [Unknown]
  - Hypersensitivity [Unknown]
  - Candida infection [Unknown]
  - Influenza [Unknown]
  - Chills [Unknown]
  - Vomiting [Unknown]
  - Diarrhoea [Unknown]
  - Rash [Unknown]
  - Hypersensitivity [Unknown]
  - Pruritus [Unknown]
  - Anaemia [Unknown]
  - Fatigue [Unknown]
  - Nausea [Unknown]
  - Headache [Unknown]
